FAERS Safety Report 17641726 (Version 1)
Quarter: 2020Q2

REPORT INFORMATION
  Report Type: Spontaneous
  Country: GB (occurrence: GB)
  Receive Date: 20200407
  Receipt Date: 20200407
  Transmission Date: 20200713
  Serious: Yes (Other)
  Sender: FDA-Public Use
  Company Number: GB-BEH-2020115609

PATIENT
  Sex: Female

DRUGS (1)
  1. HIZENTRA [Suspect]
     Active Substance: HUMAN IMMUNOGLOBULIN G
     Indication: PRODUCT USED FOR UNKNOWN INDICATION
     Dosage: 4 SYRINGES OF 40ML ON ONE DAY EACH WEEK
     Route: 058
     Dates: start: 20200402

REACTIONS (4)
  - Abdominal pain upper [Unknown]
  - Gastric dilatation [Unknown]
  - Headache [Unknown]
  - Decreased appetite [Unknown]
